FAERS Safety Report 16533701 (Version 2)
Quarter: 2019Q3

REPORT INFORMATION
  Report Type: Spontaneous
  Country: US (occurrence: US)
  Receive Date: 20190704
  Receipt Date: 20190917
  Transmission Date: 20191004
  Serious: Yes (Other)
  Sender: FDA-Public Use
  Company Number: US-AMGEN-USASP2019104374

PATIENT
  Age: 74 Year
  Sex: Female

DRUGS (2)
  1. PROLIA [Suspect]
     Active Substance: DENOSUMAB
     Indication: OSTEOPENIA
     Dosage: UNK
     Route: 065
     Dates: start: 201812
  2. PROLIA [Suspect]
     Active Substance: DENOSUMAB
     Indication: BONE LOSS

REACTIONS (11)
  - Off label use [Unknown]
  - Vertigo [Unknown]
  - Myalgia [Unknown]
  - Arthralgia [Unknown]
  - Breast cancer [Unknown]
  - Hot flush [Unknown]
  - Weight decreased [Unknown]
  - Gait disturbance [Unknown]
  - Gastrooesophageal reflux disease [Not Recovered/Not Resolved]
  - Back pain [Unknown]
  - Nausea [Unknown]

NARRATIVE: CASE EVENT DATE: 201907
